FAERS Safety Report 5707227-7 (Version None)
Quarter: 2008Q2

REPORT INFORMATION
  Report Type: 
  Country: None (occurrence: None)
  Receive Date: 20080415
  Receipt Date: 20080415
  Transmission Date: 20081010
  Serious: No
  Sender: FDA-Public Use
  Company Number: None

PATIENT
  Age: 58 Year
  Sex: Male
  Weight: 94.8 kg

DRUGS (5)
  1. VARENICLINE [Suspect]
     Indication: SMOKING CESSATION THERAPY
     Dosage: 1MG BID PO
     Route: 048
     Dates: start: 20080114, end: 20080229
  2. ACETAMINOPHEN AND HYDROCODONE BITARTRATE [Concomitant]
  3. TEMAZEPAM [Concomitant]
  4. TERAZOSIN HCL [Concomitant]
  5. VARDENAFIL HCL [Concomitant]

REACTIONS (3)
  - ANGINA PECTORIS [None]
  - CHEST DISCOMFORT [None]
  - FEELING ABNORMAL [None]
